FAERS Safety Report 6816284-6 (Version None)
Quarter: 2010Q2

REPORT INFORMATION
  Report Type: 
  Country: None (occurrence: None)
  Receive Date: 20100630
  Receipt Date: 20100610
  Transmission Date: 20101027
  Serious: Yes (Other)
  Sender: FDA-Public Use
  Company Number: 2280705-2010-00006

PATIENT
  Age: 42 Year
  Sex: Male

DRUGS (1)
  1. ARM + HAMMER BAKING SODA, 100% SODIUM BICARBONATE [Suspect]
     Indication: ANTACID THERAPY
     Dosage: 1/2 TBS, EVERY 2HR, ORALLY
     Route: 048
     Dates: start: 20100501, end: 20100601

REACTIONS (1)
  - HAEMATOCHEZIA [None]
